FAERS Safety Report 14703094 (Version 4)
Quarter: 2018Q2

REPORT INFORMATION
  Report Type: Report from Study
  Country: None (occurrence: US)
  Receive Date: 20180402
  Receipt Date: 20180601
  Transmission Date: 20180711
  Serious: Yes (Other)
  Sender: FDA-Public Use
  Company Number: US-ABBVIE-18K-163-2304428-00

PATIENT
  Age: 62 Year
  Sex: Female
  Weight: 46.76 kg

DRUGS (2)
  1. HUMIRA [Suspect]
     Active Substance: ADALIMUMAB
     Route: 058
  2. HUMIRA [Suspect]
     Active Substance: ADALIMUMAB
     Indication: RHEUMATOID ARTHRITIS
     Route: 058

REACTIONS (3)
  - Hydrocephalus [Recovering/Resolving]
  - Post procedural complication [Unknown]
  - Fatigue [Unknown]

NARRATIVE: CASE EVENT DATE: 201803
